FAERS Safety Report 10939171 (Version 2)
Quarter: 2015Q2

REPORT INFORMATION
  Report Type: Spontaneous
  Country: US (occurrence: US)
  Receive Date: 20150322
  Receipt Date: 20150525
  Transmission Date: 20150821
  Serious: No
  Sender: FDA-Public Use
  Company Number: US-JNJFOC-20141210512

PATIENT
  Age: 44 Year
  Sex: Female
  Weight: 86.18 kg

DRUGS (4)
  1. NUCYNTA ER [Suspect]
     Active Substance: TAPENTADOL HYDROCHLORIDE
     Indication: FIBROMYALGIA
     Dosage: ONCE AT NIGHT
     Route: 048
     Dates: start: 201411, end: 20141205
  2. NUCYNTA ER [Suspect]
     Active Substance: TAPENTADOL HYDROCHLORIDE
     Indication: FIBROMYALGIA
     Dosage: ONCE IN THE MORNING
     Route: 048
     Dates: start: 201411, end: 20141205
  3. CYMBALTA [Concomitant]
     Active Substance: DULOXETINE HYDROCHLORIDE
     Indication: FIBROMYALGIA
     Dosage: ONCE A DAY
     Route: 048
  4. NUCYNTA ER [Suspect]
     Active Substance: TAPENTADOL HYDROCHLORIDE
     Indication: FIBROMYALGIA
     Dosage: TWICE A DAY
     Route: 048
     Dates: start: 201409, end: 201411

REACTIONS (4)
  - Malaise [Not Recovered/Not Resolved]
  - Drug effect decreased [Unknown]
  - Drug ineffective [Unknown]
  - Pain [Not Recovered/Not Resolved]

NARRATIVE: CASE EVENT DATE: 201411
